FAERS Safety Report 10222896 (Version 1)
Quarter: 2014Q2

REPORT INFORMATION
  Report Type: Spontaneous
  Country: US (occurrence: None)
  Receive Date: 20140606
  Receipt Date: 20140606
  Transmission Date: 20141212
  Serious: No
  Sender: FDA-Public Use
  Company Number: None

PATIENT
  Age: 74 Year
  Sex: Female

DRUGS (1)
  1. HUMIRA 40MG ABBVIE [Suspect]
     Indication: TORTICOLLIS
     Dosage: 40MG EOW SQ
     Route: 058
     Dates: start: 201402

REACTIONS (5)
  - Influenza like illness [None]
  - Headache [None]
  - Rash [None]
  - Rash [None]
  - Stevens-Johnson syndrome [None]
